FAERS Safety Report 4443700-X (Version None)
Quarter: 2004Q3

REPORT INFORMATION
  Report Type: 
  Country: None (occurrence: None)
  Receive Date: 20040908
  Receipt Date: 20040830
  Transmission Date: 20050211
  Serious: Yes (Other)
  Sender: FDA-Public Use
  Company Number: US-ROCHE-378986

PATIENT
  Age: 46 Year
  Sex: Female

DRUGS (5)
  1. PEGASYS [Suspect]
     Indication: HEPATITIS C
     Route: 065
     Dates: start: 20040420
  2. REBETOL [Suspect]
     Indication: HEPATITIS C
     Route: 065
     Dates: start: 20040601
  3. TRILEPTAL [Concomitant]
     Route: 048
  4. ZOLOFT [Concomitant]
     Route: 048
  5. PEG-INTRON [Concomitant]
     Indication: HEPATITIS C
     Dates: start: 20040106, end: 20040420

REACTIONS (1)
  - GRAND MAL CONVULSION [None]
